FAERS Safety Report 4417850-8 (Version None)
Quarter: 2004Q3

REPORT INFORMATION
  Report Type: 
  Country: None (occurrence: None)
  Receive Date: 20040803
  Receipt Date: 20040720
  Transmission Date: 20050211
  Serious: Yes (Hospitalization, Disabling)
  Sender: FDA-Public Use
  Company Number: 2004AP02578

PATIENT
  Age: 29 Year
  Sex: Female

DRUGS (2)
  1. MARCAINE [Suspect]
     Indication: LOCAL ANAESTHESIA
     Dosage: 0.5 % IT
     Dates: start: 20020408, end: 20020408
  2. MARCAINE [Suspect]
     Indication: EPIDURAL ANAESTHESIA
     Dosage: 0.5 %
     Route: 008
     Dates: start: 20020408, end: 20020410

REACTIONS (5)
  - ANAESTHETIC COMPLICATION [None]
  - CAESAREAN SECTION [None]
  - CAUDA EQUINA SYNDROME [None]
  - COMPLICATIONS OF MATERNAL EXPOSURE TO THERAPEUTIC DRUGS [None]
  - PREGNANCY [None]
